FAERS Safety Report 10635920 (Version 1)
Quarter: 2014Q4

REPORT INFORMATION
  Report Type: Spontaneous
  Country: US (occurrence: US)
  Receive Date: 20141205
  Receipt Date: 20141205
  Transmission Date: 20150529
  Serious: No
  Sender: FDA-Public Use
  Company Number: US-ELI_LILLY_AND_COMPANY-US201411010707

PATIENT
  Sex: Female

DRUGS (4)
  1. HUMALOG [Suspect]
     Active Substance: INSULIN LISPRO
     Dosage: 26 U, EACH EVENING
     Route: 065
     Dates: start: 2004
  2. LANTUS [Concomitant]
     Active Substance: INSULIN GLARGINE
  3. HUMALOG [Suspect]
     Active Substance: INSULIN LISPRO
     Indication: TYPE 2 DIABETES MELLITUS
     Dosage: 22 U, EACH MORNING
     Route: 065
     Dates: start: 2004
  4. HUMALOG [Suspect]
     Active Substance: INSULIN LISPRO
     Dosage: 24 U, QD
     Route: 065
     Dates: start: 2004

REACTIONS (1)
  - Diabetic retinopathy [Unknown]
